FAERS Safety Report 8136552-8 (Version None)
Quarter: 2012Q1

REPORT INFORMATION
  Report Type: 
  Country: None (occurrence: None)
  Receive Date: 20120214
  Receipt Date: 20120209
  Transmission Date: 20120608
  Serious: Yes (Hospitalization, Other)
  Sender: FDA-Public Use
  Company Number: PHHY2012AU011382

PATIENT
  Sex: Male

DRUGS (2)
  1. CLOZARIL [Suspect]
     Dosage: UNK UKN, UNK
     Dates: start: 20090302
  2. CLOZARIL [Suspect]
     Dosage: 50 MG, UNK
     Dates: start: 20120205

REACTIONS (2)
  - NEUROLEPTIC MALIGNANT SYNDROME [None]
  - INFECTION [None]
